FAERS Safety Report 6733680-6 (Version None)
Quarter: 2010Q2

REPORT INFORMATION
  Report Type: 
  Country: None (occurrence: None)
  Receive Date: 20100520
  Receipt Date: 20100513
  Transmission Date: 20101027
  Serious: No
  Sender: FDA-Public Use
  Company Number: JP-ABBOTT-10P-087-0637026-00

PATIENT
  Sex: Female
  Weight: 57.5 kg

DRUGS (4)
  1. HUMIRA [Suspect]
     Indication: RHEUMATOID ARTHRITIS
     Dosage: 2- 40 MG INJECTIONS EVERY 2 WEEKS
     Route: 058
     Dates: start: 20100302, end: 20100316
  2. HUMIRA [Suspect]
     Route: 058
     Dates: start: 20091222, end: 20100216
  3. PREDNISOLONE [Concomitant]
     Indication: RHEUMATOID ARTHRITIS
     Route: 048
     Dates: start: 20081121
  4. METHOTREXATE [Concomitant]
     Indication: RHEUMATOID ARTHRITIS
     Dosage: 2 MG WEEKLY
     Dates: start: 20091030, end: 20100302

REACTIONS (1)
  - HEPATIC FUNCTION ABNORMAL [None]
